FAERS Safety Report 25828322 (Version 2)
Quarter: 2025Q4

REPORT INFORMATION
  Report Type: Report from Study
  Country: CL (occurrence: CL)
  Receive Date: 20250921
  Receipt Date: 20251014
  Transmission Date: 20260117
  Serious: No
  Sender: JOHNSON AND JOHNSON
  Company Number: CL-JNJFOC-20250918874

PATIENT
  Age: 60 Year
  Sex: Female

DRUGS (1)
  1. SIMPONI [Suspect]
     Active Substance: GOLIMUMAB
     Indication: Rheumatoid arthritis
     Dosage: STRENGTH: 50.00 MG / 0.50 ML
     Route: 058
     Dates: start: 20240131

REACTIONS (4)
  - Device issue [Unknown]
  - Product dose omission issue [Unknown]
  - Inflammation [Unknown]
  - Anxiety [Unknown]

NARRATIVE: CASE EVENT DATE: 20250101
